FAERS Safety Report 23582682 (Version 1)
Quarter: 2024Q1

REPORT INFORMATION
  Report Type: Report from Study
  Country: US (occurrence: US)
  Receive Date: 20240229
  Receipt Date: 20240229
  Transmission Date: 20240410
  Serious: Yes (Other)
  Sender: FDA-Public Use
  Company Number: US-ABBVIE-5658895

PATIENT
  Age: 71 Year
  Sex: Female

DRUGS (2)
  1. SKYRIZI [Suspect]
     Active Substance: RISANKIZUMAB-RZAA
     Indication: Crohn^s disease
     Dosage: FIRST ADMIN DATE: 2024
     Route: 058
  2. SKYRIZI [Suspect]
     Active Substance: RISANKIZUMAB-RZAA
     Route: 058
     Dates: start: 20220921, end: 202401

REACTIONS (7)
  - Knee arthroplasty [Recovering/Resolving]
  - Gastrointestinal sounds abnormal [Unknown]
  - Fear of eating [Unknown]
  - Gastroenteritis viral [Not Recovered/Not Resolved]
  - Abdominal discomfort [Unknown]
  - Diarrhoea [Unknown]
  - Malaise [Unknown]

NARRATIVE: CASE EVENT DATE: 20240101
